FAERS Safety Report 16908804 (Version 6)
Quarter: 2019Q4

REPORT INFORMATION
  Report Type: Spontaneous
  Country: US (occurrence: US)
  Receive Date: 20191011
  Receipt Date: 20191120
  Transmission Date: 20200122
  Serious: Yes (Other)
  Sender: FDA-Public Use
  Company Number: US-PFIZER INC-2019438289

PATIENT
  Age: 79 Year
  Sex: Female

DRUGS (1)
  1. IBRANCE [Suspect]
     Active Substance: PALBOCICLIB
     Indication: BREAST CANCER METASTATIC
     Dosage: UNK
     Dates: start: 20191002

REACTIONS (15)
  - Oral pain [Unknown]
  - Abdominal pain upper [Unknown]
  - Confusional state [Unknown]
  - Suicidal ideation [Unknown]
  - Pain in extremity [Unknown]
  - Breast pain [Unknown]
  - Back pain [Unknown]
  - Anxiety [Unknown]
  - Eating disorder [Unknown]
  - Depressed mood [Unknown]
  - Insomnia [Unknown]
  - Restlessness [Unknown]
  - Nausea [Unknown]
  - Nasal congestion [Unknown]
  - Emotional disorder [Unknown]
